FAERS Safety Report 10100773 (Version 2)
Quarter: 2014Q3

REPORT INFORMATION
  Report Type: Spontaneous
  Country: US (occurrence: US)
  Receive Date: 20140423
  Receipt Date: 20140721
  Transmission Date: 20150326
  Serious: No
  Sender: FDA-Public Use
  Company Number: US-ACTELION-A-US2014-97716

PATIENT

DRUGS (1)
  1. TRACLEER [Suspect]
     Active Substance: BOSENTAN\BOSENTAN MONOHYDRATE
     Dosage: 125 MG, UNK
     Route: 048

REACTIONS (2)
  - Product packaging issue [Unknown]
  - No adverse event [Unknown]

NARRATIVE: CASE EVENT DATE: 20140409
